FAERS Safety Report 8997351 (Version 2)
Quarter: 2015Q2

REPORT INFORMATION
  Report Type: Spontaneous
  Country: CH (occurrence: CH)
  Receive Date: 20130104
  Receipt Date: 20150615
  Transmission Date: 20150821
  Serious: Yes (Hospitalization, Other)
  Sender: FDA-Public Use
  Company Number: CH-JNJFOC-20130101155

PATIENT
  Age: 80 Year
  Sex: Male
  Weight: 86 kg

DRUGS (7)
  1. XARELTO [Suspect]
     Active Substance: RIVAROXABAN
     Indication: CEREBROVASCULAR ACCIDENT PROPHYLAXIS
     Dosage: 700 MG CUMULATIVE DOSE TO FIRST REACTION
     Route: 048
     Dates: start: 20120918, end: 20121022
  2. PANTOPRAZOLE [Concomitant]
     Active Substance: PANTOPRAZOLE SODIUM
     Indication: PRODUCT USED FOR UNKNOWN INDICATION
     Route: 048
     Dates: start: 20120918
  3. XARELTO [Suspect]
     Active Substance: RIVAROXABAN
     Indication: ATRIAL FIBRILLATION
     Dosage: 700 MG CUMULATIVE DOSE TO FIRST REACTION
     Route: 048
     Dates: start: 20120918, end: 20121022
  4. SINTROM [Concomitant]
     Active Substance: ACENOCOUMAROL
     Indication: PRODUCT USED FOR UNKNOWN INDICATION
     Route: 065
  5. FLUDEX [Concomitant]
     Active Substance: INDAPAMIDE
     Indication: PRODUCT USED FOR UNKNOWN INDICATION
     Route: 065
  6. ASPIRIN CARDIO [Interacting]
     Active Substance: ASPIRIN
     Indication: PRODUCT USED FOR UNKNOWN INDICATION
     Route: 048
     Dates: start: 1992
  7. CONCOR [Concomitant]
     Active Substance: BISOPROLOL FUMARATE
     Indication: PRODUCT USED FOR UNKNOWN INDICATION
     Route: 065
     Dates: start: 20120720

REACTIONS (4)
  - Haemorrhage [Unknown]
  - Anaemia [Recovered/Resolved]
  - Drug interaction [Unknown]
  - Angina pectoris [Recovered/Resolved]

NARRATIVE: CASE EVENT DATE: 20121022
